FAERS Safety Report 20690809 (Version 1)
Quarter: 2022Q2

REPORT INFORMATION
  Report Type: Spontaneous
  Country: ES (occurrence: None)
  Receive Date: 20220408
  Receipt Date: 20220408
  Transmission Date: 20220720
  Serious: Yes (Other)
  Sender: FDA-Public Use
  Company Number: None

PATIENT
  Age: 79 Year
  Sex: Female

DRUGS (5)
  1. FUROSEMIDE [Suspect]
     Active Substance: FUROSEMIDE
     Indication: Cardiac failure
     Dosage: 20.0 MG C/8 HORAS / 20.0 MG EVERY 8 HOURS
     Route: 042
     Dates: start: 20201028, end: 20201029
  2. PREGABALIN [Concomitant]
     Active Substance: PREGABALIN
     Indication: Pain
     Dosage: 25.0 MG DECOCE / 25.0 MG BREAKFAST, LUNCH, AND DINNER
     Route: 048
     Dates: start: 20201009
  3. EDOXABAN TOSYLATE [Concomitant]
     Active Substance: EDOXABAN TOSYLATE
     Indication: Atrial fibrillation
     Dosage: 60.0 MG DE / 60.0 MG BREAKFAST
     Route: 048
     Dates: start: 20180505
  4. ACETAMINOPHEN [Concomitant]
     Active Substance: ACETAMINOPHEN
     Indication: Bronchitis
     Dosage: 1.0 G DECOCE / 1.0 G BREAKFAST, LUNCH, AND DINNER
     Route: 048
     Dates: start: 20120730
  5. BECLOMETHASONE DIPROPIONATE\FORMOTEROL FUMARATE [Concomitant]
     Active Substance: BECLOMETHASONE DIPROPIONATE\FORMOTEROL FUMARATE
     Indication: Bronchitis
     Dosage: 1.0 PUFF C/12 H / 1.0 PUFF EVERY 12 H
     Dates: start: 20200710

REACTIONS (1)
  - Prerenal failure [Recovered/Resolved]

NARRATIVE: CASE EVENT DATE: 20201028
